FAERS Safety Report 8756898 (Version 2)
Quarter: 2012Q4

REPORT INFORMATION
  Report Type: 
  Country: US (occurrence: US)
  Receive Date: 20120828
  Receipt Date: 20120910
  Transmission Date: 20130627
  Serious: Yes (Life-Threatening, Hospitalization, Disabling)
  Sender: FDA-Public Use
  Company Number: US-BAYER-2012-086712

PATIENT
  Age: 30 Year
  Sex: Female
  Weight: 67.57 kg

DRUGS (7)
  1. YAZ [Suspect]
  2. OCELLA [Suspect]
  3. YASMIN [Suspect]
  4. AZITHROMYCIN [Concomitant]
     Dosage: 250 mg, UNK
  5. AMOXICILLIN TRIHYDRATE W/CLAVULANTE POTASSIUM [Concomitant]
     Dosage: 875-125 mg
  6. KEFLEX [Concomitant]
  7. ASPIRIN [Concomitant]

REACTIONS (9)
  - Thrombophlebitis superficial [None]
  - Thrombosis [None]
  - Injury [None]
  - General physical health deterioration [None]
  - Pain [None]
  - Emotional distress [None]
  - Pain [None]
  - Anhedonia [None]
  - Anxiety [None]
